FAERS Safety Report 9612700 (Version 3)
Quarter: 2013Q4

REPORT INFORMATION
  Report Type: Spontaneous
  Country: US (occurrence: None)
  Receive Date: 20131008
  Receipt Date: 20131125
  Transmission Date: 20140711
  Serious: Yes (Hospitalization)
  Sender: FDA-Public Use
  Company Number: 2013-US-001409

PATIENT
  Age: 62 Year
  Sex: Male
  Weight: 81.6 kg

DRUGS (7)
  1. XYREM [Suspect]
     Indication: NARCOLEPSY
     Dosage: 2.25 G,  BID,  ORAL
     Route: 048
     Dates: start: 20061206
  2. XYREM [Suspect]
     Indication: CATAPLEXY
     Dosage: 2.25 G,  BID,  ORAL
     Route: 048
     Dates: start: 20061206
  3. CALCITONIN (CALCITONIN, SALMON) [Concomitant]
  4. CYCLOBENZAPRINE (CYCLOBENZAPRINE HYDROCHLORIDE) [Concomitant]
  5. LEVOTHYROXINE (LEVOTHYROXINE SODIUM) [Concomitant]
  6. MODAFINIL [Concomitant]
  7. OMEPRAZOLE [Concomitant]

REACTIONS (4)
  - Stent placement [None]
  - Cardiac operation [None]
  - Coronary artery disease [None]
  - Angina unstable [None]
